FAERS Safety Report 4475337-0 (Version None)
Quarter: 2004Q4

REPORT INFORMATION
  Report Type: 
  Country: None (occurrence: None)
  Receive Date: 20041013
  Receipt Date: 20041013
  Transmission Date: 20050328
  Serious: Yes (Hospitalization, Other)
  Sender: FDA-Public Use
  Company Number: None

PATIENT
  Age: 78 Year
  Sex: Male
  Weight: 99.7913 kg

DRUGS (13)
  1. LORAZEPAM [Suspect]
     Indication: ANXIETY
     Dosage: 1 MG PO PRN
     Route: 048
     Dates: start: 20040629
  2. HYDROCODONE BITARTRATE + ACETAMINOPHEN [Suspect]
     Indication: PAIN
     Dosage: 2 TABS PO Q4-6H PRN
     Route: 048
     Dates: start: 20040629
  3. ACURETIC [Concomitant]
  4. LIPITOR [Concomitant]
  5. DILTIAZEM [Concomitant]
  6. PREVACID [Concomitant]
  7. ASPIRIN [Concomitant]
  8. DHEA [Concomitant]
  9. CHONDROITIN [Concomitant]
  10. VIT C [Concomitant]
  11. OMEGA-3 [Concomitant]
  12. FLAXSEED OIL [Concomitant]
  13. M.V.I. [Concomitant]

REACTIONS (4)
  - CONFUSIONAL STATE [None]
  - FALL [None]
  - INJURY [None]
  - POSTOPERATIVE WOUND COMPLICATION [None]
